FAERS Safety Report 16940239 (Version 5)
Quarter: 2025Q4

REPORT INFORMATION
  Report Type: Report from Study
  Country: US (occurrence: US)
  Receive Date: 20191021
  Receipt Date: 20251120
  Transmission Date: 20260117
  Serious: Yes (Life-Threatening, Other)
  Sender: TAKEDA
  Company Number: US-SHIRE-US201934625

PATIENT
  Age: 49 Year
  Sex: Female

DRUGS (9)
  1. PARATHYROID HORMONE [Suspect]
     Active Substance: PARATHYROID HORMONE
     Indication: Hypoparathyroidism
     Dosage: 50 MICROGRAM, QD
  2. PARATHYROID HORMONE [Suspect]
     Active Substance: PARATHYROID HORMONE
     Dosage: 75 MICROGRAM, QD
  3. PARATHYROID HORMONE [Suspect]
     Active Substance: PARATHYROID HORMONE
     Dosage: 50 MICROGRAM, QD
     Dates: start: 2020
  4. CALCIUM [Concomitant]
     Active Substance: CALCIUM
     Indication: Hypocalcaemia
     Dosage: 2000 MILLIGRAM, QD
  5. CALCIUM [Concomitant]
     Active Substance: CALCIUM
     Dosage: 3000 MILIGRAM, QD
  6. CALCITRIOL [Concomitant]
     Active Substance: CALCITRIOL
     Indication: Hypocalcaemia
     Dosage: 0.5 MICROGRAM, QD
  7. TYMLOS [Concomitant]
     Active Substance: ABALOPARATIDE
     Dosage: 40 MICROGRAM
  8. TYMLOS [Concomitant]
     Active Substance: ABALOPARATIDE
     Dosage: 80 MICROGRAM, BID
  9. FORTEO [Concomitant]
     Active Substance: TERIPARATIDE
     Dosage: 20 MICROGRAM, BID

REACTIONS (11)
  - Hypocalcaemia [Recovered/Resolved]
  - Pancreatitis chronic [Unknown]
  - Bone pain [Unknown]
  - Brain fog [Unknown]
  - Abdominal discomfort [Unknown]
  - Nausea [Unknown]
  - Vomiting [Unknown]
  - Diarrhoea [Unknown]
  - Temperature intolerance [Unknown]
  - Recalled product [Unknown]
  - Treatment noncompliance [Not Recovered/Not Resolved]

NARRATIVE: CASE EVENT DATE: 20221007
